FAERS Safety Report 5096601-0 (Version None)
Quarter: 2006Q3

REPORT INFORMATION
  Report Type: 
  Country: None (occurrence: None)
  Receive Date: 20060830
  Receipt Date: 20060821
  Transmission Date: 20061208
  Serious: Yes (Other)
  Sender: FDA-Public Use
  Company Number: 2006101993

PATIENT
  Sex: Female

DRUGS (3)
  1. SERLAIN (SERTRALINE) [Suspect]
     Indication: NERVOUSNESS
     Dosage: 25 MG (50 MG, 2 IN 1 D), ORAL
     Route: 048
  2. DIAMICRON (GLICLAZIDE) [Concomitant]
  3. ZESTRIL [Concomitant]

REACTIONS (8)
  - ANXIETY [None]
  - BLOOD GLUCOSE DECREASED [None]
  - BREAST CANCER IN SITU [None]
  - DIABETES MELLITUS NON-INSULIN-DEPENDENT [None]
  - HYPERTENSION [None]
  - NERVOUSNESS [None]
  - SELF-MEDICATION [None]
  - TREATMENT NONCOMPLIANCE [None]
